FAERS Safety Report 12051900 (Version 1)
Quarter: 2016Q1

REPORT INFORMATION
  Report Type: Spontaneous
  Country: None (occurrence: None)
  Receive Date: 20160208
  Receipt Date: 20160208
  Transmission Date: 20160526
  Serious: Yes (Disabling)
  Sender: FDA-Public Use
  Company Number: None

PATIENT
  Age: 76 Year
  Sex: Male

DRUGS (20)
  1. SALT PACK [Concomitant]
  2. PRE-PROTEIN [Concomitant]
  3. GLUTAPACK [Concomitant]
  4. INTESTINEX [Concomitant]
  5. AMIODARONE [Concomitant]
     Active Substance: AMIODARONE
  6. BICITRA [Concomitant]
     Active Substance: CITRIC ACID, 1-STEARYL ESTER\SODIUM CITRATE
  7. THIAMINE. [Concomitant]
     Active Substance: THIAMINE
  8. EPC KIT CREAM [Concomitant]
  9. CANCIDAS [Concomitant]
     Active Substance: CASPOFUNGIN ACETATE
  10. SOLU-MEDROL [Concomitant]
     Active Substance: METHYLPREDNISOLONE SODIUM SUCCINATE
  11. DOPAMINE [Suspect]
     Active Substance: DOPAMINE\DOPAMINE HYDROCHLORIDE
     Indication: HYPOTENSION
     Dosage: 800MG/250ML D5W 30MCG/KG/MINUTE
     Route: 042
     Dates: start: 20160125, end: 20160204
  12. POLY B [Concomitant]
  13. VANCOMYCIN [Concomitant]
     Active Substance: VANCOMYCIN
  14. CALCIUM CARBONATE. [Concomitant]
     Active Substance: CALCIUM CARBONATE
  15. MERREM [Concomitant]
     Active Substance: MEROPENEM
  16. FOLIC ACID. [Concomitant]
     Active Substance: FOLIC ACID
  17. THERA DERM CREAM [Concomitant]
  18. CHLORHEXIDINE [Concomitant]
     Active Substance: CHLORHEXIDINE
  19. METRONIDAZOLE. [Concomitant]
     Active Substance: METRONIDAZOLE
  20. LEVOPHED [Suspect]
     Active Substance: NOREPINEPHRINE BITARTRATE
     Indication: HYPOTENSION
     Dosage: 16MG/500ML D5W 30MCG/MINUTE
     Route: 042
     Dates: start: 20160125, end: 20160204

REACTIONS (1)
  - Cyanosis [None]

NARRATIVE: CASE EVENT DATE: 20160202
